FAERS Safety Report 6988613-4 (Version None)
Quarter: 2010Q3

REPORT INFORMATION
  Report Type: 
  Country: None (occurrence: None)
  Receive Date: 20100916
  Receipt Date: 20100908
  Transmission Date: 20110219
  Serious: Yes (Hospitalization)
  Sender: FDA-Public Use
  Company Number: US-US-EMD SERONO, INC.-7017183

PATIENT
  Sex: Female

DRUGS (3)
  1. REBIF [Suspect]
     Indication: PRODUCT USED FOR UNKNOWN INDICATION
     Dates: start: 20060626, end: 20060818
  2. REBIF [Suspect]
     Route: 058
     Dates: start: 20090310
  3. METFORMIN [Concomitant]
     Indication: TYPE 2 DIABETES MELLITUS

REACTIONS (7)
  - BLOOD PRESSURE ABNORMAL [None]
  - CONVULSION [None]
  - FLUID RETENTION [None]
  - GAIT DISTURBANCE [None]
  - LOSS OF CONSCIOUSNESS [None]
  - OCULAR HYPERAEMIA [None]
  - VISION BLURRED [None]
